FAERS Safety Report 8248145-2 (Version None)
Quarter: 2012Q1

REPORT INFORMATION
  Report Type: 
  Country: None (occurrence: None)
  Receive Date: 20120330
  Receipt Date: 20120327
  Transmission Date: 20120608
  Serious: Yes (Hospitalization, Other)
  Sender: FDA-Public Use
  Company Number: US-PFIZER INC-2012038867

PATIENT
  Sex: Female
  Weight: 72.109 kg

DRUGS (14)
  1. ADVAIR DISKUS 100/50 [Concomitant]
     Dosage: 250/50, UNITS AND FREQUENCY NOT PROVIDED
  2. SYNTHROID [Concomitant]
     Indication: THYROID DISORDER
     Dosage: 0.2 MG, 1X/DAY
  3. ACETYLSALICYLIC ACID [Concomitant]
     Dosage: 375 MG, UNK
  4. GLIPIZIDE [Concomitant]
     Dosage: 5 MG, UNK
  5. PREMARIN [Concomitant]
     Dosage: 1.1 G, UNK
  6. LIPITOR [Suspect]
     Indication: BLOOD CHOLESTEROL INCREASED
     Dosage: 20 MG, DAILY
     Route: 048
     Dates: start: 19980101
  7. HYDROCHLOROTHIAZIDE [Concomitant]
     Dosage: 25, NO UNITS OR FREQUENCY PROVIDED
  8. TOPROL-XL [Concomitant]
     Dosage: 50 MG, UNK
  9. LIPITOR [Suspect]
     Dosage: 10 MG, UNK
  10. DICYCLOMINE [Concomitant]
     Dosage: 20 MG, UNK
  11. COMBIVENT [Concomitant]
     Dosage: UNK
  12. METFORMIN [Concomitant]
     Dosage: 750 MG, UNK
  13. PLAVIX [Concomitant]
     Dosage: 75, NO UNITS OR FREQUENCY PROVIDED
  14. LEVOXYL [Concomitant]
     Dosage: 150 UG, UNK

REACTIONS (4)
  - MYOCARDIAL INFARCTION [None]
  - PERIPHERAL ARTERIAL OCCLUSIVE DISEASE [None]
  - FEELING ABNORMAL [None]
  - PAIN IN EXTREMITY [None]
